FAERS Safety Report 19814926 (Version 1)
Quarter: 2021Q3

REPORT INFORMATION
  Report Type: Spontaneous
  Country: US (occurrence: US)
  Receive Date: 20210907
  Receipt Date: 20210907
  Transmission Date: 20211014
  Serious: No
  Sender: FDA-Public Use
  Company Number: None

PATIENT
  Age: 65 Year
  Sex: Male
  Weight: 69 kg

DRUGS (2)
  1. METOLAZONE (METOLAZONE 2.5MG TAB) [Suspect]
     Active Substance: METOLAZONE
     Indication: CARDIAC FAILURE CONGESTIVE
     Dosage: OTHER
     Route: 048
     Dates: start: 20210803, end: 20210831
  2. METOLAZONE (METOLAZONE 2.5MG TAB) [Suspect]
     Active Substance: METOLAZONE
     Indication: OEDEMA
     Dosage: OTHER
     Route: 048
     Dates: start: 20210803, end: 20210831

REACTIONS (2)
  - Hyponatraemia [None]
  - Hypokalaemia [None]

NARRATIVE: CASE EVENT DATE: 20210831
